FAERS Safety Report 21193173 (Version 4)
Quarter: 2024Q4

REPORT INFORMATION
  Report Type: Report from Study
  Country: US (occurrence: US)
  Receive Date: 20220810
  Receipt Date: 20241121
  Transmission Date: 20250115
  Serious: Yes (Death, Other)
  Sender: TAKEDA
  Company Number: US-TAKEDA-2022TUS052986

PATIENT
  Age: 82 Year
  Sex: Female

DRUGS (8)
  1. TEDUGLUTIDE [Suspect]
     Active Substance: TEDUGLUTIDE
     Indication: Short-bowel syndrome
     Dosage: 3.06 MILLIGRAM, QD
     Dates: start: 201903, end: 201908
  2. TEDUGLUTIDE [Suspect]
     Active Substance: TEDUGLUTIDE
     Dosage: 3.06 MILLIGRAM, QD
     Dates: start: 201908, end: 20191022
  3. TEDUGLUTIDE [Suspect]
     Active Substance: TEDUGLUTIDE
  4. TEDUGLUTIDE [Suspect]
     Active Substance: TEDUGLUTIDE
  5. VANCOMYCIN [Concomitant]
     Active Substance: VANCOMYCIN
     Indication: Bacteraemia
     Dosage: 1000 MILLIGRAM, QD
     Dates: start: 20180916, end: 20180919
  6. TOBRAMYCIN [Concomitant]
     Active Substance: TOBRAMYCIN\TOBRAMYCIN SULFATE
     Indication: Arthritis bacterial
     Dosage: 380 MILLIGRAM
     Dates: start: 20180914, end: 20180919
  7. BACTRIM DS [Concomitant]
     Active Substance: SULFAMETHOXAZOLE\TRIMETHOPRIM
     Indication: Arthritis bacterial
     Dosage: UNK UNK, BID
     Dates: start: 20180914, end: 20180916
  8. CIPROFLOXACIN [Concomitant]
     Active Substance: CIPROFLOXACIN
     Indication: Arthritis bacterial
     Dosage: 400 MILLIGRAM, BID
     Dates: start: 20180914, end: 20180918

REACTIONS (2)
  - Death [Fatal]
  - Atrial fibrillation [Not Recovered/Not Resolved]

NARRATIVE: CASE EVENT DATE: 20190606
